FAERS Safety Report 5253973-1 (Version None)
Quarter: 2007Q1

REPORT INFORMATION
  Report Type: 
  Country: None (occurrence: None)
  Receive Date: 20070302
  Receipt Date: 20070227
  Transmission Date: 20070707
  Serious: Yes (Hospitalization, Other)
  Sender: FDA-Public Use
  Company Number: GB-JNJFOC-20070205912

PATIENT
  Sex: Male
  Weight: 84 kg

DRUGS (10)
  1. REMICADE [Suspect]
     Indication: RHEUMATOID ARTHRITIS
     Route: 042
  2. SULFASALAZINE [Concomitant]
     Route: 065
  3. METHOTREXATE [Concomitant]
     Route: 065
  4. PREDNISOLONE [Concomitant]
     Route: 065
  5. CALCIUM [Concomitant]
     Route: 065
  6. ERGOCALCIFEROL [Concomitant]
     Route: 065
  7. FOLIC ACID [Concomitant]
     Route: 065
  8. FOSAMAX [Concomitant]
     Route: 065
  9. INDOMETHACIN [Concomitant]
     Route: 065
  10. RANITIDINE [Concomitant]
     Route: 065

REACTIONS (1)
  - CYST [None]
